FAERS Safety Report 4537475-3 (Version None)
Quarter: 2004Q4

REPORT INFORMATION
  Report Type: 
  Country: None (occurrence: None)
  Receive Date: 20041216
  Receipt Date: 20031203
  Transmission Date: 20050328
  Serious: Yes (Disabling)
  Sender: FDA-Public Use
  Company Number: HQWYE496809DEC03

PATIENT
  Age: 50 Year
  Sex: Male
  Weight: 90.8 kg

DRUGS (4)
  1. EFFEXOR XR [Suspect]
     Indication: DEPRESSION
     Dosage: 75 MG 3X PER 1 DAY, ORAL
     Route: 048
     Dates: end: 20040217
  2. EFFEXOR XR [Suspect]
     Indication: DEPRESSION
     Dosage: 75 MG 3X PER 1 DAY, ORAL
     Route: 048
     Dates: start: 20030801
  3. VIAGRA [Concomitant]
  4. WELLBUTRIN SR [Concomitant]

REACTIONS (3)
  - CHILLS [None]
  - ERECTILE DYSFUNCTION [None]
  - TRISMUS [None]
